FAERS Safety Report 7904692-1 (Version None)
Quarter: 2011Q4

REPORT INFORMATION
  Report Type: 
  Country: None (occurrence: None)
  Receive Date: 20111109
  Receipt Date: 20111020
  Transmission Date: 20120403
  Serious: Yes (Hospitalization)
  Sender: FDA-Public Use
  Company Number: AU-GLAXOSMITHKLINE-B0758641A

PATIENT
  Age: 20 Year
  Sex: Female

DRUGS (1)
  1. VENTOLIN DS [Suspect]
     Indication: PRODUCT USED FOR UNKNOWN INDICATION
     Route: 055

REACTIONS (3)
  - DYSPNOEA [None]
  - FOREIGN BODY [None]
  - FOREIGN BODY ASPIRATION [None]
